FAERS Safety Report 13306429 (Version 1)
Quarter: 2017Q1

REPORT INFORMATION
  Report Type: Spontaneous
  Country: US (occurrence: US)
  Receive Date: 20170308
  Receipt Date: 20170308
  Transmission Date: 20170428
  Serious: Yes (Other)
  Sender: FDA-Public Use
  Company Number: US-SUNOVION-2016SUN003344

PATIENT

DRUGS (1)
  1. LATUDA [Suspect]
     Active Substance: LURASIDONE HYDROCHLORIDE
     Dosage: UNK
     Route: 048

REACTIONS (6)
  - Insomnia [Unknown]
  - Suicidal ideation [Unknown]
  - Movement disorder [Unknown]
  - Suicide attempt [Unknown]
  - Nightmare [Unknown]
  - Blood pressure increased [Unknown]
